FAERS Safety Report 21609889 (Version 1)
Quarter: 2022Q4

REPORT INFORMATION
  Report Type: Spontaneous
  Country: US (occurrence: None)
  Receive Date: 20221117
  Receipt Date: 20221117
  Transmission Date: 20230113
  Serious: Yes (Other)
  Sender: FDA-Public Use
  Company Number: US-LOTUS-2022-LOTUS-049524

PATIENT
  Age: 45 Year
  Sex: Male

DRUGS (6)
  1. METHOTREXATE [Suspect]
     Active Substance: METHOTREXATE
     Indication: Mesenteric panniculitis
  2. TAMOXIFEN [Suspect]
     Active Substance: TAMOXIFEN
     Indication: Mesenteric panniculitis
  3. AZATHIOPRINE [Suspect]
     Active Substance: AZATHIOPRINE
     Indication: Mesenteric panniculitis
  4. COLCHICINE [Suspect]
     Active Substance: COLCHICINE
     Indication: Mesenteric panniculitis
  5. CYCLOPHOSPHAMIDE [Suspect]
     Active Substance: CYCLOPHOSPHAMIDE
     Indication: Mesenteric panniculitis
  6. PREDNISONE [Suspect]
     Active Substance: PREDNISONE
     Indication: Intestinal obstruction
     Dosage: EACH TIME PREDNISONE DOSE WAS LOWERED BELOW 20 MG

REACTIONS (1)
  - Hepatic cirrhosis [Recovered/Resolved]
